FAERS Safety Report 7326395-7 (Version None)
Quarter: 2011Q1

REPORT INFORMATION
  Report Type: 
  Country: None (occurrence: None)
  Receive Date: 20110302
  Receipt Date: 20110224
  Transmission Date: 20110831
  Serious: Yes (Other)
  Sender: FDA-Public Use
  Company Number: US-BRISTOL-MYERS SQUIBB COMPANY-15569197

PATIENT
  Age: 60 Year
  Sex: Female
  Weight: 77 kg

DRUGS (2)
  1. METFORMIN HCL [Suspect]
  2. GLIPIZIDE [Concomitant]

REACTIONS (2)
  - ABDOMINAL SYMPTOM [None]
  - PRODUCT COUNTERFEIT [None]
